FAERS Safety Report 26182464 (Version 1)
Quarter: 2025Q4

REPORT INFORMATION
  Report Type: Spontaneous
  Country: EU (occurrence: EU)
  Receive Date: 20251221
  Receipt Date: 20251221
  Transmission Date: 20260118
  Serious: Yes (Hospitalization)
  Sender: AMGEN
  Company Number: EU-AMGEN-GRCSP2025236261

PATIENT
  Age: 25 Year
  Sex: Female

DRUGS (18)
  1. ECULIZUMAB [Suspect]
     Active Substance: ECULIZUMAB
     Indication: Paroxysmal nocturnal haemoglobinuria
     Dosage: 600 MILLIGRAM, QWK X 4 WEEKS
     Route: 065
  2. ECULIZUMAB [Suspect]
     Active Substance: ECULIZUMAB
     Indication: Aplastic anaemia
     Dosage: 900 MILLIGRAM, Q2WK
     Route: 065
  3. FILGRASTIM [Suspect]
     Active Substance: FILGRASTIM
     Indication: Product used for unknown indication
     Dosage: 30 MICROGRAM, QD
     Route: 065
  4. Haemophilus influenza bacteria [Concomitant]
     Indication: Paroxysmal nocturnal haemoglobinuria
  5. Haemophilus influenza bacteria [Concomitant]
     Indication: Aplastic anaemia
  6. IRON [Concomitant]
     Active Substance: IRON
     Indication: Mineral supplementation
  7. FOLIC ACID [Concomitant]
     Active Substance: FOLIC ACID
     Indication: Vitamin supplementation
  8. PROPOFOL [Concomitant]
     Active Substance: PROPOFOL
     Indication: Induction of anaesthesia
     Dosage: 2.5 MILLIGRAM/KILOGRAM
  9. ROCURONIUM [Concomitant]
     Active Substance: ROCURONIUM BROMIDE
     Indication: Induction of anaesthesia
     Dosage: 0.9 MILLIGRAM/KILOGRAM
  10. TRANEXAMIC ACID [Concomitant]
     Active Substance: TRANEXAMIC ACID
     Dosage: 1 GRAM
  11. FIBRINOGEN [Concomitant]
     Active Substance: FIBRINOGEN HUMAN
  12. CARBETOCIN [Concomitant]
     Active Substance: CARBETOCIN
     Indication: Prophylaxis
     Dosage: 100 MICROGRAM
     Route: 040
  13. ERGONOVINE MALEATE [Concomitant]
     Active Substance: ERGONOVINE MALEATE
     Indication: Prophylaxis
     Dosage: 200 MICROGRAM
     Route: 040
  14. FENTANYL [Concomitant]
     Active Substance: FENTANYL
     Indication: Analgesic therapy
     Dosage: 250 MICROGRAM
  15. MORPHINE [Concomitant]
     Active Substance: MORPHINE
     Indication: Analgesic therapy
     Dosage: 8 MILLIGRAM
  16. ACETAMINOPHEN [Concomitant]
     Active Substance: ACETAMINOPHEN
     Indication: Analgesic therapy
     Dosage: 1 GRAM
  17. DEXKETOPROFEN [Concomitant]
     Active Substance: DEXKETOPROFEN
     Indication: Analgesic therapy
     Dosage: 50 MILLIGRAM
  18. ENOXAPARIN [Concomitant]
     Active Substance: ENOXAPARIN
     Dosage: 40 MILLIGRAM, QD
     Route: 058

REACTIONS (6)
  - Blood albumin decreased [Unknown]
  - Protein total decreased [Unknown]
  - Prothrombin time shortened [Unknown]
  - Premature delivery [Unknown]
  - Maternal exposure during pregnancy [Unknown]
  - Drug ineffective [Unknown]
